FAERS Safety Report 10977681 (Version 1)
Quarter: 2015Q1

REPORT INFORMATION
  Report Type: Spontaneous
  Country: US (occurrence: None)
  Receive Date: 20150330
  Receipt Date: 20150330
  Transmission Date: 20150721
  Serious: Yes (Hospitalization)
  Sender: FDA-Public Use
  Company Number: 2015TASUS000668

PATIENT
  Age: 32 Year
  Sex: Male
  Weight: 80.3 kg

DRUGS (7)
  1. NOVOLOG [Concomitant]
     Active Substance: INSULIN ASPART
  2. SIMVASTATIN. [Concomitant]
     Active Substance: SIMVASTATIN
  3. LEVEMIR [Concomitant]
     Active Substance: INSULIN DETEMIR
  4. LISINOPRIL. [Concomitant]
     Active Substance: LISINOPRIL
  5. HETLIOZ [Suspect]
     Active Substance: TASIMELTEON
     Indication: CIRCADIAN RHYTHM SLEEP DISORDER
     Dosage: QHS
     Route: 048
     Dates: start: 201412
  6. AMLODIPINE (AMLODIPINE BESILATE) [Concomitant]
  7. SODIUM BICARBONATE. [Concomitant]
     Active Substance: SODIUM BICARBONATE

REACTIONS (6)
  - Haemodialysis [None]
  - Sleep disorder [None]
  - Condition aggravated [None]
  - Unevaluable event [None]
  - Renal impairment [None]
  - Drug effect decreased [None]

NARRATIVE: CASE EVENT DATE: 201502
